FAERS Safety Report 15877925 (Version 1)
Quarter: 2019Q1

REPORT INFORMATION
  Report Type: Spontaneous
  Country: FR (occurrence: FR)
  Receive Date: 20190128
  Receipt Date: 20190128
  Transmission Date: 20190417
  Serious: Yes (Other)
  Sender: FDA-Public Use
  Company Number: FR-TEVA-2019-FR-1004296

PATIENT
  Age: 74 Year
  Sex: Female

DRUGS (19)
  1. SPASFON [PHLOROGLUCINOL] [Suspect]
     Active Substance: PHLOROGLUCINOL
     Indication: PRODUCT USED FOR UNKNOWN INDICATION
     Dosage: IF NECESSARY
     Route: 048
     Dates: start: 20181130, end: 20181213
  2. CEFTRIAXONE MYLAN 1 G, POUDRE POUR SOLUTION INJECTABLE [Suspect]
     Active Substance: CEFTRIAXONE
     Indication: PRODUCT USED FOR UNKNOWN INDICATION
     Dosage: 1 GRAM DAILY;
     Route: 042
     Dates: start: 20181126, end: 20181129
  3. AMOXICILLINE ACIDE CLAVULANIQUE SANDOZ [Suspect]
     Active Substance: AMOXICILLIN\CLAVULANATE POTASSIUM
     Indication: CHOLECYSTITIS ACUTE
     Dosage: 3 GRAM DAILY;
     Route: 042
     Dates: start: 20181129, end: 20181211
  4. HYDROCORTISONE ROUSSEL [Suspect]
     Active Substance: HYDROCORTISONE
     Indication: PRODUCT USED FOR UNKNOWN INDICATION
     Dosage: 60 MILLIGRAM DAILY; MORNING, NOON AND NIGHT (DECAY)
     Route: 048
     Dates: start: 20181207, end: 20181214
  5. SPIRONOLACTONE ARROW 50 MG, COMPRIM? PELLICUL? S?CABLE [Suspect]
     Active Substance: SPIRONOLACTONE
     Indication: PRODUCT USED FOR UNKNOWN INDICATION
     Dosage: 50 MILLIGRAM DAILY;
     Route: 048
     Dates: start: 20181130
  6. RENVELA [Suspect]
     Active Substance: SEVELAMER CARBONATE
     Indication: PRODUCT USED FOR UNKNOWN INDICATION
     Dosage: 2400 MILLIGRAM DAILY;
     Route: 048
     Dates: start: 20181204, end: 20181210
  7. ACIDE FOLIQUE CCD 5 MG, COMPRIM? [Suspect]
     Active Substance: FOLIC ACID
     Indication: PRODUCT USED FOR UNKNOWN INDICATION
     Dosage: 10 MG
     Route: 048
     Dates: start: 20181201
  8. FORLAX [Suspect]
     Active Substance: POLYETHYLENE GLYCOL 4000
     Indication: PRODUCT USED FOR UNKNOWN INDICATION
     Dosage: 1 DOSAGE FORMS DAILY; 1 PACKET IN THE MORNING
     Route: 048
     Dates: start: 20181207
  9. AMIKACINE MYLAN 1 G, POUDRE POUR SOLUTION INJECTABLE EN FLACON [Suspect]
     Active Substance: AMIKACIN
     Indication: PRODUCT USED FOR UNKNOWN INDICATION
     Dosage: 1 GRAM DAILY;
     Route: 042
     Dates: start: 20181126, end: 20181127
  10. DIFFU K, G?LULE [Suspect]
     Active Substance: POTASSIUM CHLORIDE
     Indication: PRODUCT USED FOR UNKNOWN INDICATION
     Dosage: 1800 MILLIGRAM DAILY; 1 MORNING, 1 NOON, 1 EVENING
     Route: 048
     Dates: start: 20181206, end: 20181212
  11. HEPARINE SODIQUE PANPHARMA [Suspect]
     Active Substance: HEPARIN SODIUM
     Indication: PRODUCT USED FOR UNKNOWN INDICATION
     Dosage: 1250 IU PER HOUR
     Route: 042
     Dates: start: 20181130, end: 20181212
  12. FUNGIZONE [Suspect]
     Active Substance: AMPHOTERICIN B
     Indication: PRODUCT USED FOR UNKNOWN INDICATION
     Dosage: 15 ML DAILY;
     Route: 048
     Dates: start: 20181206, end: 20181213
  13. PARACETAMOL B BRAUN [Suspect]
     Active Substance: ACETAMINOPHEN
     Indication: PAIN
     Dosage: IF NECESSARY
     Route: 042
     Dates: start: 20181130
  14. LASILIX [Suspect]
     Active Substance: FUROSEMIDE
     Indication: OEDEMA PERIPHERAL
     Dosage: 500 MILLIGRAM DAILY;
     Route: 042
     Dates: start: 20181130, end: 20181209
  15. LANSOPRAZOLE MYLAN [Suspect]
     Active Substance: LANSOPRAZOLE
     Indication: PRODUCT USED FOR UNKNOWN INDICATION
     Dosage: 30 MILLIGRAM DAILY;
     Route: 048
     Dates: start: 20181208, end: 20181213
  16. FUROSEMIDE TEVA 500 MG, COMPRIM? S?CABLE [Suspect]
     Active Substance: FUROSEMIDE
     Indication: OEDEMA PERIPHERAL
     Dosage: UNKNOWN,500 MG
     Route: 048
     Dates: start: 20181209
  17. TRIMEBUTINE ARROW [Suspect]
     Active Substance: TRIMEBUTINE MALEATE
     Indication: PRODUCT USED FOR UNKNOWN INDICATION
     Dosage: 300 MILLIGRAM DAILY; 1 MORNING, 1 NOON, 1 EVENING
     Route: 048
     Dates: start: 20181207
  18. ESIDREX [Suspect]
     Active Substance: HYDROCHLOROTHIAZIDE
     Indication: PRODUCT USED FOR UNKNOWN INDICATION
     Dosage: 25 MILLIGRAM DAILY;
     Dates: start: 20181130, end: 20181208
  19. COUMADINE [Suspect]
     Active Substance: WARFARIN SODIUM
     Indication: PRODUCT USED FOR UNKNOWN INDICATION
     Dosage: 3 MILLIGRAM DAILY;
     Route: 048
     Dates: start: 20181203, end: 20181210

REACTIONS (4)
  - Rash erythematous [Recovering/Resolving]
  - Eosinophilia [Recovered/Resolved]
  - Renal failure [Not Recovered/Not Resolved]
  - Pyrexia [Recovered/Resolved]

NARRATIVE: CASE EVENT DATE: 201812
